FAERS Safety Report 5321830-8 (Version None)
Quarter: 2007Q2

REPORT INFORMATION
  Report Type: 
  Country: None (occurrence: None)
  Receive Date: 20070510
  Receipt Date: 20070510
  Transmission Date: 20071010
  Serious: Yes (Hospitalization, Other)
  Sender: FDA-Public Use
  Company Number: PL-BRISTOL-MYERS SQUIBB COMPANY-13757836

PATIENT
  Age: 55 Year
  Sex: Female

DRUGS (3)
  1. CISPLATIN [Suspect]
     Indication: GASTRIC CANCER
     Route: 041
     Dates: start: 20051221, end: 20051221
  2. FLUOROURACIL [Suspect]
     Indication: GASTRIC CANCER
     Route: 041
     Dates: start: 20051221, end: 20051225
  3. CLEXANE [Concomitant]
     Indication: EMBOLISM
     Route: 058
     Dates: start: 20051001

REACTIONS (2)
  - PERIPHERAL EMBOLISM [None]
  - POSTOPERATIVE WOUND COMPLICATION [None]
